FAERS Safety Report 6631666-3 (Version None)
Quarter: 2010Q1

REPORT INFORMATION
  Report Type: 
  Country: None (occurrence: None)
  Receive Date: 20100312
  Receipt Date: 20100303
  Transmission Date: 20100710
  Serious: Yes (Hospitalization)
  Sender: FDA-Public Use
  Company Number: AT-NAPPMUNDI-DEU-2010-0005973

PATIENT
  Age: 45 Year
  Sex: Male

DRUGS (2)
  1. HYDAL RETARD 8 MG-KAPSELN [Suspect]
     Indication: DRUG USE FOR UNKNOWN INDICATION
     Dosage: 320 MG, SINGLE
     Dates: start: 20090919, end: 20090919
  2. ALCOHOL [Suspect]
     Indication: ALCOHOL ABUSE
     Dosage: UNK
     Dates: start: 20090919, end: 20090919

REACTIONS (8)
  - ALCOHOL POISONING [None]
  - DRUG TOXICITY [None]
  - EXTRASYSTOLES [None]
  - HYPOKALAEMIA [None]
  - HYPOTENSION [None]
  - INTENTIONAL SELF-INJURY [None]
  - RESPIRATORY FAILURE [None]
  - SOMNOLENCE [None]
